FAERS Safety Report 5721561-6 (Version None)
Quarter: 2008Q2

REPORT INFORMATION
  Report Type: 
  Country: None (occurrence: None)
  Receive Date: 20080429
  Receipt Date: 20070416
  Transmission Date: 20081010
  Serious: Yes (Hospitalization)
  Sender: FDA-Public Use
  Company Number: US-ASTRAZENECA-2007AC00713

PATIENT
  Age: 63 Year
  Sex: Male

DRUGS (5)
  1. ESOMEPRAZOLE [Suspect]
     Indication: ANTACID THERAPY
  2. TRAMADOL HYDROCHLORIDE AND ACETAMINOPHEN [Concomitant]
  3. AMLODIPINE [Concomitant]
  4. DIAZEPAM [Concomitant]
  5. CALCITRIOL [Concomitant]

REACTIONS (1)
  - NEPHRITIS INTERSTITIAL [None]
